FAERS Safety Report 6193134-5 (Version None)
Quarter: 2009Q2

REPORT INFORMATION
  Report Type: 
  Country: None (occurrence: None)
  Receive Date: 20090514
  Receipt Date: 20090514
  Transmission Date: 20091009
  Serious: No
  Sender: FDA-Public Use
  Company Number: None

PATIENT
  Age: 51 Year
  Sex: Female
  Weight: 79.3795 kg

DRUGS (2)
  1. LEVAQUIN [Suspect]
     Indication: BRONCHITIS
     Dosage: 750 MG DAILY PO
     Route: 048
     Dates: start: 20090425, end: 20090505
  2. LEVAQUIN [Suspect]
     Indication: SINUSITIS
     Dosage: 750 MG DAILY PO
     Route: 048
     Dates: start: 20090425, end: 20090505

REACTIONS (3)
  - ARTHRALGIA [None]
  - GAIT DISTURBANCE [None]
  - MOBILITY DECREASED [None]
